FAERS Safety Report 8418151 (Version 7)
Quarter: 2013Q4

REPORT INFORMATION
  Report Type: Spontaneous
  Country: US (occurrence: US)
  Receive Date: 20120221
  Receipt Date: 20131008
  Transmission Date: 20140711
  Serious: Yes (Other)
  Sender: FDA-Public Use
  Company Number: US-JNJFOC-20120206139

PATIENT
  Age: 60 Year
  Sex: Female
  Weight: 50.8 kg

DRUGS (24)
  1. REMICADE [Suspect]
     Indication: CROHN^S DISEASE
     Dosage: 3 INFUSIONS
     Route: 042
     Dates: start: 20120126
  2. REMICADE [Suspect]
     Indication: CROHN^S DISEASE
     Route: 042
     Dates: start: 2013
  3. ENTOCORT [Concomitant]
     Indication: CROHN^S DISEASE
     Route: 048
  4. QUESTRAN [Concomitant]
     Indication: DIARRHOEA
     Dosage: 1 PACK MIXED WITH WATER OR NON-CARBONATED DRINK
     Route: 065
  5. IMODIUM [Concomitant]
     Indication: CROHN^S DISEASE
     Dosage: AS NEEDED
     Route: 048
  6. CLONAZEPAM [Concomitant]
     Indication: DEPRESSION
     Route: 048
     Dates: start: 201201
  7. PROZAC [Concomitant]
     Indication: DEPRESSION
     Route: 048
     Dates: start: 2007
  8. XANAX [Concomitant]
     Indication: DEPRESSION
     Dosage: AS NEEDED
     Route: 048
  9. CARAFATE [Concomitant]
     Indication: GASTROOESOPHAGEAL REFLUX DISEASE
     Dosage: AS NEEDED
     Route: 048
  10. DEXILANT [Concomitant]
     Indication: GASTROOESOPHAGEAL REFLUX DISEASE
     Route: 048
     Dates: start: 2008
  11. HYDROCORTISONE [Concomitant]
     Indication: PREMEDICATION
     Route: 042
     Dates: start: 2013
  12. BENADRYL [Concomitant]
     Indication: PREMEDICATION
     Route: 048
     Dates: start: 2013
  13. XIFAXAN [Concomitant]
     Indication: INFLAMMATORY BOWEL DISEASE
     Route: 065
  14. MVI [Concomitant]
     Route: 065
  15. CODEINE SULFATE [Concomitant]
     Indication: INFLAMMATORY BOWEL DISEASE
     Dosage: 0.5 TABLET
     Route: 065
  16. FLONASE [Concomitant]
     Dosage: 50 MCG/ ^ACT^ SUSPENSION, IN EACH NOSTRIL.
     Route: 045
  17. ENTOCORT [Concomitant]
     Route: 065
  18. LOPERAMIDE HYDROCHLORIDE [Concomitant]
     Dosage: 1 CAPSULE UP TO 8 TABLETS PER 24 HOURS AS NEEDED
     Route: 065
  19. FLUOXETINE HYDROCHLORIDE [Concomitant]
     Indication: PREMENSTRUAL DYSPHORIC DISORDER
     Route: 065
  20. FLUTICASONE PROPIONATE [Concomitant]
     Dosage: 50 MCG/ACTIVATED CLOTTING TIME (ACT) SUSPENSION, 1 SPRAY IN EACH NOSTRIL
     Route: 065
  21. ASTELIN [Concomitant]
     Dosage: 1 PUFF IN EACH NOSTRIL
     Route: 065
  22. ALPRAZOLAM [Concomitant]
     Dosage: AS NEEDED
     Route: 065
  23. ATENOLOL [Concomitant]
     Route: 065
  24. TYLENOL 3 [Concomitant]
     Dosage: DOSE: 300-30 MG
     Route: 065

REACTIONS (16)
  - Depression [Not Recovered/Not Resolved]
  - Furuncle [Recovered/Resolved]
  - Hypertension [Unknown]
  - Oropharyngeal pain [Recovered/Resolved]
  - Skin lesion [Recovered/Resolved]
  - Eye swelling [Not Recovered/Not Resolved]
  - Muscle twitching [Not Recovered/Not Resolved]
  - Malaise [Not Recovered/Not Resolved]
  - Contusion [Recovering/Resolving]
  - Diarrhoea [Not Recovered/Not Resolved]
  - Oral herpes [Recovering/Resolving]
  - Abdominal pain upper [Not Recovered/Not Resolved]
  - Pain in extremity [Not Recovered/Not Resolved]
  - Muscle spasms [Not Recovered/Not Resolved]
  - Infusion related reaction [Recovered/Resolved]
  - Photosensitivity reaction [Recovered/Resolved]
